FAERS Safety Report 15406450 (Version 1)
Quarter: 2018Q3

REPORT INFORMATION
  Report Type: Spontaneous
  Country: US (occurrence: US)
  Receive Date: 20180919
  Receipt Date: 20180919
  Transmission Date: 20181010
  Serious: Yes (Other)
  Sender: FDA-Public Use
  Company Number: None

PATIENT
  Age: 67 Year
  Sex: Female
  Weight: 83.25 kg

DRUGS (5)
  1. ACETAMINOPHEN\HYDROCODONE [Suspect]
     Active Substance: ACETAMINOPHEN\HYDROCODONE
     Indication: PROCEDURAL PAIN
     Dosage: ?          QUANTITY:21 TABLET(S);?
     Route: 048
     Dates: start: 20180913, end: 20180919
  2. GARLIC. [Concomitant]
     Active Substance: GARLIC
  3. ESTRACE [Concomitant]
     Active Substance: ESTRADIOL
  4. ALBUTERAL [Concomitant]
     Active Substance: ALBUTEROL
  5. MULTIVITAMINS [Concomitant]
     Active Substance: VITAMINS

REACTIONS (2)
  - Psychomotor hyperactivity [None]
  - Insomnia [None]

NARRATIVE: CASE EVENT DATE: 20180913
